FAERS Safety Report 8333763-3 (Version None)
Quarter: 2012Q2

REPORT INFORMATION
  Report Type: 
  Country: None (occurrence: None)
  Receive Date: 20120503
  Receipt Date: 20120420
  Transmission Date: 20120825
  Serious: Yes (Hospitalization)
  Sender: FDA-Public Use
  Company Number: ES-ELI_LILLY_AND_COMPANY-ES201204007672

PATIENT
  Sex: Female

DRUGS (5)
  1. ARCOXIA [Concomitant]
     Indication: PAIN
     Dosage: UNK, PRN
     Route: 048
  2. OMEPRAZOLE [Concomitant]
     Indication: GASTRIC DISORDER
     Dosage: 1 DF, QD
     Route: 048
  3. IBUPROFEN [Concomitant]
     Indication: PAIN
     Dosage: UNK, PRN
     Route: 048
  4. ENANTYUM [Concomitant]
     Indication: PAIN
     Dosage: UNK, PRN
     Route: 048
  5. FORTEO [Suspect]
     Indication: OSTEOPOROSIS
     Dosage: 20 UG, QD
     Route: 058
     Dates: start: 20111028, end: 20120305

REACTIONS (1)
  - DEVICE RELATED INFECTION [None]
